FAERS Safety Report 23700786 (Version 1)
Quarter: 2024Q2

REPORT INFORMATION
  Report Type: Spontaneous
  Country: FR (occurrence: FR)
  Receive Date: 20240403
  Receipt Date: 20240403
  Transmission Date: 20240716
  Serious: Yes (Death, Other)
  Sender: FDA-Public Use
  Company Number: None

PATIENT
  Age: 72 Year
  Sex: Female
  Weight: 46 kg

DRUGS (3)
  1. YERVOY [Suspect]
     Active Substance: IPILIMUMAB
     Indication: Renal cancer metastatic
     Route: 042
     Dates: start: 20240115, end: 20240206
  2. OPDIVO [Suspect]
     Active Substance: NIVOLUMAB
     Indication: Renal cancer metastatic
     Route: 042
     Dates: start: 20240115, end: 20240206
  3. LOVENOX [Concomitant]
     Active Substance: ENOXAPARIN SODIUM
     Indication: Product used for unknown indication
     Route: 058
     Dates: start: 20231215, end: 20240318

REACTIONS (3)
  - Hepatic cytolysis [Fatal]
  - Toxic epidermal necrolysis [Fatal]
  - Off label use [Unknown]

NARRATIVE: CASE EVENT DATE: 20240217
